FAERS Safety Report 8575243-6 (Version None)
Quarter: 2012Q3

REPORT INFORMATION
  Report Type: 
  Country: None (occurrence: None)
  Receive Date: 20120807
  Receipt Date: 20120730
  Transmission Date: 20120928
  Serious: No
  Sender: FDA-Public Use
  Company Number: US-B.I. PHARMACEUTICALS,INC./RIDGEFIELD-2012-BP-17154BP

PATIENT
  Sex: Female
  Weight: 92 kg

DRUGS (17)
  1. SPIRIVA [Suspect]
     Route: 048
     Dates: start: 20120730, end: 20120730
  2. ASPIRIN [Concomitant]
     Dosage: 81 MG
     Route: 048
     Dates: start: 20120101
  3. SPIRIVA [Suspect]
     Indication: CHRONIC OBSTRUCTIVE PULMONARY DISEASE
     Dosage: 18 MCG
     Route: 055
     Dates: start: 20110101
  4. XALATAN [Concomitant]
     Indication: GLAUCOMA
     Dates: start: 20070101
  5. ALBUTEROL [Concomitant]
     Indication: ASTHMA
     Route: 055
  6. FOLIC ACID [Concomitant]
     Indication: SUPPLEMENTATION THERAPY
     Route: 048
  7. ALPHAGAN [Concomitant]
     Indication: GLAUCOMA
  8. FLOVENT DISC [Concomitant]
     Indication: ASTHMA
     Dosage: 500 MG
     Route: 055
     Dates: start: 20100101
  9. SYMBICORT [Concomitant]
     Indication: ASTHMA
     Route: 055
     Dates: start: 20120101
  10. VITAMIN D [Concomitant]
     Indication: SUPPLEMENTATION THERAPY
     Route: 048
     Dates: start: 20100101
  11. ZYFLO [Concomitant]
     Indication: ASTHMA
     Dosage: 1200 MG
     Route: 048
     Dates: start: 20120101
  12. ZYFLO [Concomitant]
     Indication: CHRONIC OBSTRUCTIVE PULMONARY DISEASE
  13. LIDODERM [Concomitant]
     Indication: BACK DISORDER
     Route: 061
     Dates: start: 20120101
  14. GABAPENTIN [Concomitant]
     Indication: BACK DISORDER
     Route: 048
     Dates: start: 20110101
  15. SIMVASTATIN [Concomitant]
     Indication: BLOOD CHOLESTEROL ABNORMAL
     Route: 048
     Dates: start: 20100101
  16. LOVAZA [Concomitant]
     Indication: BLOOD CHOLESTEROL ABNORMAL
     Route: 048
     Dates: start: 20100101
  17. CALCIUM [Concomitant]
     Indication: LUNG NEOPLASM MALIGNANT
     Route: 048
     Dates: start: 20100101

REACTIONS (4)
  - HOT FLUSH [None]
  - BACK PAIN [None]
  - HYPERSENSITIVITY [None]
  - INCORRECT ROUTE OF DRUG ADMINISTRATION [None]
